FAERS Safety Report 14694432 (Version 3)
Quarter: 2018Q2

REPORT INFORMATION
  Report Type: Spontaneous
  Country: US (occurrence: US)
  Receive Date: 20180329
  Receipt Date: 20180605
  Transmission Date: 20180711
  Serious: Yes (Other)
  Sender: FDA-Public Use
  Company Number: US-PFIZER INC-2018124350

PATIENT
  Age: 78 Year
  Sex: Female
  Weight: 80.73 kg

DRUGS (2)
  1. LIPITOR [Suspect]
     Active Substance: ATORVASTATIN CALCIUM
     Dosage: 10 MG, ONCE A DAY (IN THE EVENING AFTER DINNER)
  2. PROZAC [Concomitant]
     Active Substance: FLUOXETINE HYDROCHLORIDE
     Indication: NAUSEA
     Dosage: 20 MG, UNK

REACTIONS (7)
  - Neoplasm malignant [Unknown]
  - Urinary tract infection [Recovered/Resolved]
  - Vertigo [Unknown]
  - Cerebrovascular accident [Unknown]
  - Joint injury [Unknown]
  - Fall [Unknown]
  - Cystitis [Recovered/Resolved]

NARRATIVE: CASE EVENT DATE: 201307
